FAERS Safety Report 7673277-7 (Version None)
Quarter: 2011Q3

REPORT INFORMATION
  Report Type: 
  Country: None (occurrence: None)
  Receive Date: 20110810
  Receipt Date: 20110806
  Transmission Date: 20111222
  Serious: No
  Sender: FDA-Public Use
  Company Number: US-TEVA-295508USA

PATIENT
  Sex: Female
  Weight: 54.48 kg

DRUGS (2)
  1. IRON TABLETS [Concomitant]
     Indication: ANAEMIA
  2. PLAN B ONE-STEP [Suspect]
     Indication: POST COITAL CONTRACEPTION
     Dosage: 1.5 MILLIGRAM;
     Route: 048
     Dates: start: 20110806, end: 20110806

REACTIONS (1)
  - VOMITING [None]
